FAERS Safety Report 18746191 (Version 1)
Quarter: 2021Q1

REPORT INFORMATION
  Report Type: Spontaneous
  Country: US (occurrence: US)
  Receive Date: 20210115
  Receipt Date: 20210115
  Transmission Date: 20210419
  Serious: Yes (Hospitalization)
  Sender: FDA-Public Use
  Company Number: None

PATIENT
  Age: 82 Year
  Sex: Male
  Weight: 102 kg

DRUGS (1)
  1. CASIRIVIMAB/IMDEVIMAB [Suspect]
     Active Substance: CASIRIVIMAB\IMDEVIMAB
     Indication: COVID-19
     Dosage: ?          OTHER FREQUENCY:ONCE;?
     Route: 042
     Dates: start: 20210114, end: 20210114

REACTIONS (7)
  - Anaphylactic reaction [None]
  - Use of accessory respiratory muscles [None]
  - Oxygen saturation decreased [None]
  - Respiratory failure [None]
  - COVID-19 [None]
  - Retching [None]
  - Chills [None]

NARRATIVE: CASE EVENT DATE: 20210114
